FAERS Safety Report 8118272-9 (Version None)
Quarter: 2012Q1

REPORT INFORMATION
  Report Type: 
  Country: None (occurrence: None)
  Receive Date: 20120207
  Receipt Date: 20120202
  Transmission Date: 20120608
  Serious: Yes (Death, Life-Threatening)
  Sender: FDA-Public Use
  Company Number: FR-ASTELLAS-2012EU000864

PATIENT
  Age: 73 Year
  Sex: Female
  Weight: 50 kg

DRUGS (1)
  1. MICAFUNGIN INJECTION [Suspect]
     Indication: CANDIDIASIS
     Dosage: 100 MG, UID/QD
     Route: 042
     Dates: end: 20110831

REACTIONS (10)
  - RENAL FAILURE ACUTE [None]
  - INFECTIOUS PERITONITIS [None]
  - ALANINE AMINOTRANSFERASE INCREASED [None]
  - CONDUCTION DISORDER [None]
  - ASPARTATE AMINOTRANSFERASE INCREASED [None]
  - SEPTIC SHOCK [None]
  - DEATH [None]
  - MYOCARDIAL INFARCTION [None]
  - LARGE INTESTINE PERFORATION [None]
  - BLOOD BILIRUBIN INCREASED [None]
